FAERS Safety Report 7277343-X (Version None)
Quarter: 2011Q1

REPORT INFORMATION
  Report Type: 
  Country: None (occurrence: None)
  Receive Date: 20110203
  Receipt Date: 20110203
  Transmission Date: 20110831
  Serious: Yes (Disabling)
  Sender: FDA-Public Use
  Company Number: None

PATIENT
  Sex: Male

DRUGS (1)
  1. DEXAMETHASONE [Suspect]
     Indication: MORTON'S NEUROMA
     Dosage: 4 MG/ML TWICE INJECTION
     Route: 058
     Dates: start: 20100921, end: 20101012

REACTIONS (4)
  - FEELING HOT [None]
  - ERYTHEMA [None]
  - PAIN [None]
  - OEDEMA [None]
